FAERS Safety Report 17761333 (Version 2)
Quarter: 2020Q2

REPORT INFORMATION
  Report Type: Spontaneous
  Country: US (occurrence: US)
  Receive Date: 20200508
  Receipt Date: 20200529
  Transmission Date: 20200714
  Serious: No
  Sender: FDA-Public Use
  Company Number: US-AMGEN-USASP2020070838

PATIENT
  Age: 76 Year
  Sex: Male
  Weight: 71.84 kg

DRUGS (4)
  1. VITAMINE D [Concomitant]
     Active Substance: CHOLECALCIFEROL
     Dosage: 800 UNK, T
  2. PROLIA [Suspect]
     Active Substance: DENOSUMAB
     Indication: OSTEOPOROSIS
     Dosage: 60 MILLIGRAM, Q6MO
     Route: 065
     Dates: start: 2019
  3. CALCIUM [Concomitant]
     Active Substance: CALCIUM
     Dosage: UNK
  4. ELIGARD [Concomitant]
     Active Substance: LEUPROLIDE ACETATE

REACTIONS (1)
  - Memory impairment [Not Recovered/Not Resolved]
